FAERS Safety Report 19609383 (Version 2)
Quarter: 2021Q3

REPORT INFORMATION
  Report Type: Spontaneous
  Country: RO (occurrence: RO)
  Receive Date: 20210726
  Receipt Date: 20210924
  Transmission Date: 20211014
  Serious: Yes (Other)
  Sender: FDA-Public Use
  Company Number: NVSC2021RO163733

PATIENT
  Age: 41 Year
  Sex: Male

DRUGS (4)
  1. MEKINIST [Suspect]
     Active Substance: TRAMETINIB DIMETHYL SULFOXIDE
     Indication: MALIGNANT MELANOMA
     Dosage: 2 MG, QD
     Route: 048
     Dates: start: 202011, end: 202106
  2. MEKINIST [Suspect]
     Active Substance: TRAMETINIB DIMETHYL SULFOXIDE
     Dosage: 2 MG, QD CAPSULE
     Route: 048
     Dates: start: 20201125, end: 20210729
  3. TAFINLAR [Suspect]
     Active Substance: DABRAFENIB MESYLATE
     Indication: MALIGNANT MELANOMA
     Dosage: 75 MG, BID (2 X 75MG)
     Route: 048
     Dates: start: 202011, end: 202106
  4. TAFINLAR [Suspect]
     Active Substance: DABRAFENIB MESYLATE
     Dosage: 75 MG, BID (4 PER DAY) CAPSULE
     Route: 048
     Dates: start: 20201125, end: 20210729

REACTIONS (3)
  - Amylase increased [Not Recovered/Not Resolved]
  - Lipase increased [Not Recovered/Not Resolved]
  - Pancreatic disorder [Recovered/Resolved]

NARRATIVE: CASE EVENT DATE: 202105
